FAERS Safety Report 25085957 (Version 1)
Quarter: 2025Q1

REPORT INFORMATION
  Report Type: Spontaneous
  Country: US (occurrence: US)
  Receive Date: 20250317
  Receipt Date: 20250317
  Transmission Date: 20250408
  Serious: No
  Sender: TONIX PHARMACEUTICALS
  Company Number: US-TONIX MEDICINES, INC.-2024TNX00023

PATIENT
  Age: 66 Year
  Sex: Female

DRUGS (8)
  1. TOSYMRA [Suspect]
     Active Substance: SUMATRIPTAN
     Indication: Migraine
     Route: 045
     Dates: start: 20240524, end: 2024
  2. ZEMBRACE SYMTOUCH [Concomitant]
     Active Substance: SUMATRIPTAN SUCCINATE
     Route: 058
     Dates: start: 20210429
  3. MOTRIN [Concomitant]
     Active Substance: IBUPROFEN
  4. ALEVE [Concomitant]
     Active Substance: NAPROXEN SODIUM
  5. TIROSINT [Concomitant]
     Active Substance: LEVOTHYROXINE SODIUM
  6. BOTOX [Concomitant]
     Active Substance: ONABOTULINUMTOXINA
  7. TRAZODONE [Concomitant]
     Active Substance: TRAZODONE HYDROCHLORIDE
  8. VYVANSE [Concomitant]
     Active Substance: LISDEXAMFETAMINE DIMESYLATE

REACTIONS (2)
  - Nasal congestion [Unknown]
  - Application site irritation [Unknown]

NARRATIVE: CASE EVENT DATE: 20240101
